FAERS Safety Report 5936176-4 (Version None)
Quarter: 2008Q4

REPORT INFORMATION
  Report Type: 
  Country: None (occurrence: None)
  Receive Date: 20081030
  Receipt Date: 20081020
  Transmission Date: 20090506
  Serious: Yes (Other)
  Sender: FDA-Public Use
  Company Number: US-PFIZER INC-2008088287

PATIENT
  Sex: Female
  Weight: 84 kg

DRUGS (4)
  1. CELEBREX [Suspect]
     Indication: INTERVERTEBRAL DISC PROTRUSION
  2. BEXTRA [Suspect]
     Indication: INTERVERTEBRAL DISC PROTRUSION
  3. HYDROCODONE BITARTRATE [Concomitant]
  4. EFFEXOR [Concomitant]

REACTIONS (3)
  - COLITIS ISCHAEMIC [None]
  - DRUG INEFFECTIVE [None]
  - DRY THROAT [None]
